FAERS Safety Report 9093462 (Version 1)
Quarter: 2013Q1

REPORT INFORMATION
  Report Type: Spontaneous
  Country: PR (occurrence: PR)
  Receive Date: 20130131
  Receipt Date: 20130131
  Transmission Date: 20140127
  Serious: No
  Sender: FDA-Public Use
  Company Number: PR-ABBOTT-12P-131-0950998-00

PATIENT
  Age: 74 None
  Sex: Female
  Weight: 47.67 kg

DRUGS (7)
  1. HUMIRA [Suspect]
     Indication: RHEUMATOID ARTHRITIS
     Route: 058
  2. GLUCOPHAGE [Concomitant]
     Indication: DIABETES MELLITUS
     Route: 048
  3. GLYMASE [Concomitant]
     Indication: DIABETES MELLITUS
     Route: 048
  4. CARDIZEM [Concomitant]
     Indication: CARDIAC DISORDER
     Route: 048
  5. LANOXIN [Concomitant]
     Indication: CARDIAC DISORDER
     Route: 048
  6. NEURONTIN [Concomitant]
     Indication: NEUROPATHY PERIPHERAL
     Route: 048
  7. CATEFLAM [Concomitant]
     Indication: PAIN
     Dosage: 50 OR 100 MG; 1-2 PER DAY
     Route: 048

REACTIONS (3)
  - Pyrexia [Recovered/Resolved]
  - Nasopharyngitis [Recovered/Resolved]
  - Breast haematoma [Recovering/Resolving]
